FAERS Safety Report 20697799 (Version 2)
Quarter: 2022Q2

REPORT INFORMATION
  Report Type: Report from Study
  Country: CO (occurrence: CO)
  Receive Date: 20220411
  Receipt Date: 20220512
  Transmission Date: 20220721
  Serious: Yes (Life-Threatening, Hospitalization, Other)
  Sender: FDA-Public Use
  Company Number: CO-ABBVIE-22K-036-4352613-00

PATIENT
  Age: 59 Year
  Sex: Male
  Weight: 52 kg

DRUGS (3)
  1. HUMIRA [Suspect]
     Active Substance: ADALIMUMAB
     Indication: Ankylosing spondylitis
     Route: 058
     Dates: end: 20220330
  2. HUMIRA [Suspect]
     Active Substance: ADALIMUMAB
     Indication: Ankylosing spondylitis
     Route: 058
     Dates: start: 20130705
  3. NPH INSULIN [Concomitant]
     Active Substance: INSULIN BEEF
     Indication: Diabetes mellitus

REACTIONS (12)
  - Asthenia [Not Recovered/Not Resolved]
  - Malnutrition [Recovering/Resolving]
  - Cardio-respiratory arrest [Recovering/Resolving]
  - Blood potassium decreased [Not Recovered/Not Resolved]
  - Pancreatitis [Recovering/Resolving]
  - Eating disorder [Not Recovered/Not Resolved]
  - Mobility decreased [Recovering/Resolving]
  - Joint dislocation [Recovering/Resolving]
  - Dysstasia [Recovering/Resolving]
  - Joint stiffness [Recovering/Resolving]
  - Blood glucose increased [Not Recovered/Not Resolved]
  - Gingivitis [Not Recovered/Not Resolved]

NARRATIVE: CASE EVENT DATE: 20220401
